FAERS Safety Report 8934164 (Version 1)
Quarter: 2012Q4

REPORT INFORMATION
  Report Type: 
  Country: US (occurrence: US)
  Receive Date: 20121129
  Receipt Date: 20121129
  Transmission Date: 20130627
  Serious: Yes (Other)
  Sender: FDA-Public Use
  Company Number: US-GLAXOSMITHKLINE-A0984794A

PATIENT
  Age: 54 Year
  Sex: Male

DRUGS (2)
  1. WELLBUTRIN [Suspect]
     Indication: DEPRESSION
     Dosage: 200MG See dosage text
     Route: 048
     Dates: start: 2011
  2. VITAMINS + MINERALS [Concomitant]

REACTIONS (2)
  - Convulsion [Recovered/Resolved]
  - Accidental overdose [Unknown]
